FAERS Safety Report 19420865 (Version 1)
Quarter: 2021Q2

REPORT INFORMATION
  Report Type: Spontaneous
  Country: CN (occurrence: CN)
  Receive Date: 20210616
  Receipt Date: 20210616
  Transmission Date: 20210717
  Serious: Yes (Hospitalization)
  Sender: FDA-Public Use
  Company Number: CN-ROCHE-2849700

PATIENT
  Age: 74 Year
  Sex: Female
  Weight: 39.5 kg

DRUGS (13)
  1. IRINOTECAN HYDROCHLORIDE INJECTION [Suspect]
     Active Substance: IRINOTECAN HYDROCHLORIDE
     Indication: COLON CANCER
     Route: 041
     Dates: start: 20210525, end: 20210525
  2. SODIUM CHLORIDE IV [Concomitant]
     Active Substance: SODIUM CHLORIDE
     Route: 041
     Dates: start: 20210525, end: 20210525
  3. FLUOROURACIL. [Suspect]
     Active Substance: FLUOROURACIL
     Indication: METASTASES TO LIVER
     Route: 042
     Dates: start: 20210525, end: 20210526
  4. GLUCOSE [Concomitant]
     Active Substance: DEXTROSE
     Dosage: SOLVENT OF CALCIUM FOLINATE
     Route: 042
     Dates: start: 20210525, end: 20210525
  5. SODIUM CHLORIDE IV [Concomitant]
     Active Substance: SODIUM CHLORIDE
     Dosage: VEHICLE FOR IRINOTECAN
     Route: 041
     Dates: start: 20210525, end: 20210525
  6. SODIUM CHLORIDE IV [Concomitant]
     Active Substance: SODIUM CHLORIDE
     Dosage: 0.9% SODIUM CHLORIDE INJECTION, SOLVENT FOR FLUOROURACIL (INTRAVENOUS INJECTION))
     Route: 042
     Dates: start: 20210525, end: 20210525
  7. CALCIUM FOLINATE [Concomitant]
     Active Substance: LEUCOVORIN CALCIUM
     Indication: COLON CANCER
     Route: 042
     Dates: start: 20210525, end: 20210525
  8. CALCIUM FOLINATE [Concomitant]
     Active Substance: LEUCOVORIN CALCIUM
     Indication: METASTASES TO LIVER
  9. AVASTIN [Suspect]
     Active Substance: BEVACIZUMAB
     Indication: COLON CANCER
     Route: 041
     Dates: start: 20210525, end: 20210525
  10. SODIUM CHLORIDE IV [Concomitant]
     Active Substance: SODIUM CHLORIDE
     Dosage: SOLVENT FOR BEVACIZUMAB
     Route: 041
     Dates: start: 20210525, end: 20210525
  11. AVASTIN [Suspect]
     Active Substance: BEVACIZUMAB
     Indication: METASTASES TO LIVER
  12. FLUOROURACIL. [Suspect]
     Active Substance: FLUOROURACIL
     Indication: COLON CANCER
     Route: 042
     Dates: start: 20210525, end: 20210525
  13. IRINOTECAN HYDROCHLORIDE INJECTION [Suspect]
     Active Substance: IRINOTECAN HYDROCHLORIDE
     Indication: METASTASES TO LIVER

REACTIONS (1)
  - Myelosuppression [Recovering/Resolving]

NARRATIVE: CASE EVENT DATE: 20210607
